FAERS Safety Report 4573549-9 (Version None)
Quarter: 2005Q1

REPORT INFORMATION
  Report Type: 
  Country: None (occurrence: None)
  Receive Date: 20050208
  Receipt Date: 20040915
  Transmission Date: 20050727
  Serious: No
  Sender: FDA-Public Use
  Company Number: US-GLAXOSMITHKLINE-A0525916A

PATIENT
  Sex: Female

DRUGS (1)
  1. PAXIL [Suspect]
     Indication: ANXIETY
     Dosage: 60MG PER DAY
     Route: 048

REACTIONS (5)
  - ANXIETY [None]
  - CHILLS [None]
  - DRUG INEFFECTIVE [None]
  - HEART RATE INCREASED [None]
  - NIGHTMARE [None]
